FAERS Safety Report 6349851-7 (Version None)
Quarter: 2009Q3

REPORT INFORMATION
  Report Type: 
  Country: None (occurrence: None)
  Receive Date: 20090911
  Receipt Date: 20090903
  Transmission Date: 20100115
  Serious: Yes (Other)
  Sender: FDA-Public Use
  Company Number: IT-MERCK-0908ITA00028

PATIENT
  Age: 60 Year
  Sex: Female

DRUGS (1)
  1. TRUSOPT [Suspect]
     Route: 065

REACTIONS (2)
  - DRUG INEFFECTIVE [None]
  - HYPERTENSIVE CRISIS [None]
